FAERS Safety Report 7354514-5 (Version None)
Quarter: 2011Q1

REPORT INFORMATION
  Report Type: 
  Country: None (occurrence: None)
  Receive Date: 20110316
  Receipt Date: 20100806
  Transmission Date: 20110831
  Serious: Yes (Other)
  Sender: FDA-Public Use
  Company Number: US-BAYER-201018964NA

PATIENT
  Sex: Female
  Weight: 86.168 kg

DRUGS (10)
  1. YAZ [Suspect]
     Indication: MENSTRUATION IRREGULAR
  2. YASMIN [Suspect]
     Indication: ACNE
  3. OCELLA [Suspect]
     Indication: MENSTRUATION IRREGULAR
  4. IBUPROFEN [Concomitant]
  5. YAZ [Suspect]
     Indication: ACNE
     Route: 048
     Dates: start: 20061030
  6. VICODIN [Concomitant]
  7. YASMIN [Suspect]
     Indication: AMENORRHOEA
     Route: 048
     Dates: start: 20061030
  8. YASMIN [Suspect]
     Indication: MENSTRUATION IRREGULAR
  9. OCELLA [Suspect]
     Indication: AMENORRHOEA
     Route: 048
     Dates: start: 20061030
  10. OCELLA [Suspect]
     Indication: ACNE

REACTIONS (7)
  - GALLBLADDER CHOLESTEROLOSIS [None]
  - CHOLECYSTITIS [None]
  - NAUSEA [None]
  - PAIN [None]
  - CHOLELITHIASIS [None]
  - ABDOMINAL PAIN UPPER [None]
  - ASTHENIA [None]
